FAERS Safety Report 5589650-7 (Version None)
Quarter: 2008Q1

REPORT INFORMATION
  Report Type: 
  Country: None (occurrence: None)
  Receive Date: 20080114
  Receipt Date: 20080103
  Transmission Date: 20080703
  Serious: Yes (Hospitalization)
  Sender: FDA-Public Use
  Company Number: B0361393A

PATIENT
  Age: 42 Year
  Sex: Male

DRUGS (2)
  1. PAROXETINE HYDROCHLORIDE [Suspect]
     Indication: DEPRESSION
     Dosage: 30MG PER DAY
     Route: 065
     Dates: start: 19970528, end: 19980101
  2. CHLORPROMAZINE [Concomitant]

REACTIONS (16)
  - AGITATION [None]
  - ANOREXIA [None]
  - ANXIETY [None]
  - DEPRESSED MOOD [None]
  - DRUG WITHDRAWAL SYNDROME [None]
  - INFLUENZA LIKE ILLNESS [None]
  - LETHARGY [None]
  - MAJOR DEPRESSION [None]
  - NIGHTMARE [None]
  - POOR QUALITY SLEEP [None]
  - RESTLESS LEGS SYNDROME [None]
  - SLEEP DISORDER [None]
  - SUICIDAL IDEATION [None]
  - THINKING ABNORMAL [None]
  - VERTIGO [None]
  - WEIGHT DECREASED [None]
